FAERS Safety Report 5067237-2 (Version None)
Quarter: 2006Q3

REPORT INFORMATION
  Report Type: 
  Country: None (occurrence: None)
  Receive Date: 20060727
  Receipt Date: 20060717
  Transmission Date: 20061208
  Serious: Yes (Other)
  Sender: FDA-Public Use
  Company Number: 2006089175

PATIENT
  Age: 21 Year
  Sex: Female

DRUGS (1)
  1. SERTRALINE [Suspect]
     Indication: DRUG USE FOR UNKNOWN INDICATION
     Dosage: 50 MG (50 MG, 1 IN 2 D), ORAL
     Route: 048
     Dates: start: 20030101

REACTIONS (5)
  - AFFECTIVE DISORDER [None]
  - ANXIETY [None]
  - DIZZINESS [None]
  - DRUG WITHDRAWAL SYNDROME [None]
  - PERFORMANCE STATUS DECREASED [None]
